FAERS Safety Report 8715338 (Version 2)
Quarter: 2012Q4

REPORT INFORMATION
  Report Type: Report from Study
  Country: US (occurrence: US)
  Receive Date: 20120809
  Receipt Date: 20120917
  Transmission Date: 20130627
  Serious: Yes (Death, Life-Threatening, Hospitalization)
  Sender: FDA-Public Use
  Company Number: US-GLAXOSMITHKLINE-A0988376A

PATIENT
  Age: 67 Year
  Sex: Male
  Weight: 89.1 kg

DRUGS (12)
  1. COREG [Suspect]
     Indication: HYPERLIPIDAEMIA
     Dosage: 3.125MG Per day
     Route: 048
     Dates: end: 20111010
  2. CRIZOTINIB [Suspect]
     Indication: NON-SMALL CELL LUNG CANCER
     Dosage: 250MG Twice per day
     Route: 048
     Dates: start: 20110603, end: 20111024
  3. LEVOTHYROXINE [Suspect]
     Indication: HYPOTHYROIDISM
     Dosage: 50MCG Per day
     Dates: end: 20111105
  4. POTASSIUM CHLORIDE [Suspect]
     Indication: MEDICAL DIET
     Dosage: 20MEQ Per day
     Route: 048
     Dates: end: 20111105
  5. ASPIRIN [Suspect]
     Indication: PROPHYLAXIS
     Dosage: 80MG Per day
     Route: 048
     Dates: end: 20111105
  6. BENZONATATE [Suspect]
     Indication: COUGH
     Dosage: 100MG As required
     Route: 048
     Dates: end: 20111105
  7. ZETIA [Suspect]
     Indication: HYPERLIPIDAEMIA
     Dosage: 10MEQ Per day
     Dates: end: 20111105
  8. ZOCOR [Suspect]
     Indication: HYPERLIPIDAEMIA
     Dosage: 40MG Per day
     Route: 048
     Dates: end: 20111105
  9. LASIX [Suspect]
     Indication: HYPERTENSION
     Route: 048
     Dates: end: 20111105
  10. FLUZONE [Suspect]
     Indication: INFLUENZA IMMUNISATION
     Route: 058
     Dates: start: 20111005, end: 20111005
  11. VANCOMYCIN HCL [Suspect]
     Indication: PRODUCT USED FOR UNKNOWN INDICATION
     Route: 042
     Dates: start: 20111015, end: 20111016
  12. MEROPENEM [Suspect]
     Indication: PRODUCT USED FOR UNKNOWN INDICATION
     Dosage: 1G Three times per day
     Route: 042
     Dates: start: 20111015, end: 20111019

REACTIONS (5)
  - Lung neoplasm malignant [Fatal]
  - Orthostatic hypotension [Recovering/Resolving]
  - Constipation [Recovering/Resolving]
  - Ileus [Recovering/Resolving]
  - Failure to thrive [Unknown]
